FAERS Safety Report 5618442-5 (Version None)
Quarter: 2008Q1

REPORT INFORMATION
  Report Type: 
  Country: None (occurrence: None)
  Receive Date: 20080204
  Receipt Date: 20080117
  Transmission Date: 20080703
  Serious: Yes (Other)
  Sender: FDA-Public Use
  Company Number: 2008S1000520

PATIENT
  Age: 43 Year
  Sex: Female
  Weight: 120.2032 kg

DRUGS (1)
  1. FLEET BISACODYL TABLETS [Suspect]
     Indication: LAXATIVE SUPPORTIVE CARE
     Dosage: 10 MG; X1; PO
     Route: 048
     Dates: start: 20080117, end: 20080117

REACTIONS (1)
  - OVARIAN INFECTION [None]
